FAERS Safety Report 24349464 (Version 1)
Quarter: 2024Q3

REPORT INFORMATION
  Report Type: Spontaneous
  Country: US (occurrence: US)
  Receive Date: 20240923
  Receipt Date: 20240923
  Transmission Date: 20241017
  Serious: No
  Sender: BRISTOL MYERS SQUIBB
  Company Number: US-BRISTOL-MYERS SQUIBB COMPANY-2024-149748

PATIENT
  Age: 77 Year
  Sex: Male
  Weight: 109.77 kg

DRUGS (1)
  1. LENALIDOMIDE [Suspect]
     Active Substance: LENALIDOMIDE
     Indication: Plasma cell myeloma
     Dosage: FREQUENCY: D 1-14 Q 21 DAYS
     Route: 048

REACTIONS (2)
  - Emergency care examination [Unknown]
  - Off label use [Unknown]

NARRATIVE: CASE EVENT DATE: 20240919
